FAERS Safety Report 12990539 (Version 1)
Quarter: 2016Q4

REPORT INFORMATION
  Report Type: Report from Study
  Country: NL (occurrence: NL)
  Receive Date: 20161201
  Receipt Date: 20161201
  Transmission Date: 20170207
  Serious: Yes (Other)
  Sender: FDA-Public Use
  Company Number: NL-BEH-2016075432

PATIENT
  Age: 70 Year
  Sex: Female

DRUGS (4)
  1. HIZENTRA [Suspect]
     Active Substance: HUMAN IMMUNOGLOBULIN G
     Dosage: 6 G, QW
     Route: 065
     Dates: start: 20161118
  2. HIZENTRA [Suspect]
     Active Substance: HUMAN IMMUNOGLOBULIN G
     Dosage: 6 G, QW
     Route: 065
     Dates: start: 20161104
  3. HIZENTRA [Suspect]
     Active Substance: HUMAN IMMUNOGLOBULIN G
     Indication: SJOGREN^S SYNDROME
     Dosage: 4 G,
     Route: 065
  4. HIZENTRA [Suspect]
     Active Substance: HUMAN IMMUNOGLOBULIN G
     Indication: CRYOGLOBULINAEMIA
     Dosage: 2 G,
     Route: 065

REACTIONS (7)
  - Headache [Unknown]
  - Fatigue [Unknown]
  - Blood pressure increased [Unknown]
  - Injection site swelling [Unknown]
  - Haemoglobin decreased [Unknown]
  - Injection site swelling [Unknown]
  - Blood pressure systolic increased [Unknown]

NARRATIVE: CASE EVENT DATE: 20161118
